FAERS Safety Report 8244566-2 (Version None)
Quarter: 2012Q1

REPORT INFORMATION
  Report Type: 
  Country: None (occurrence: None)
  Receive Date: 20120329
  Receipt Date: 20120328
  Transmission Date: 20120608
  Serious: Yes (Death, Hospitalization)
  Sender: FDA-Public Use
  Company Number: JP-BAYER-200913161BYL

PATIENT
  Age: 63 Year
  Sex: Female
  Weight: 58 kg

DRUGS (19)
  1. LOXONIN [Concomitant]
     Dosage: 60 MG, TID
     Route: 048
     Dates: start: 20090819
  2. ALLOID G [Concomitant]
     Dosage: 20 ML, TID
     Route: 048
     Dates: start: 20090819
  3. TOFRANIL [Concomitant]
     Dosage: 25 MG, QD
     Route: 048
     Dates: start: 20090824
  4. VOLTAREN [Concomitant]
     Dosage: 25 MG (DAILY DOSE), , RECTAL
     Route: 054
     Dates: start: 20090828
  5. FAMOTIDINE [Concomitant]
     Dosage: 20 MG, QD
     Route: 048
     Dates: start: 20090819
  6. MUCOSTA [Concomitant]
     Dosage: 100 MG, TID
     Route: 048
     Dates: start: 20090819
  7. OXYCODONE HCL [Concomitant]
     Indication: PAIN
     Dosage: 5 MG, PRN
     Route: 048
     Dates: start: 20090903
  8. PENTAZOCINE LACTATE [Concomitant]
     Dosage: 15 MG (DAILY DOSE), , SUBCUTANEOUS
     Route: 058
     Dates: start: 20090828, end: 20090828
  9. MAGNESIUM SULFATE [Concomitant]
     Dosage: 330 MG, TID
     Route: 048
     Dates: start: 20090819
  10. SHAKUYAKUKANZOUTOU [Concomitant]
     Dosage: 2.5 G, TID
     Route: 048
     Dates: start: 20090821
  11. LANSOPRAZOLE [Concomitant]
     Dosage: 15 MG, BID
     Route: 048
     Dates: start: 20090828
  12. NEXAVAR [Suspect]
     Indication: RENAL CELL CARCINOMA STAGE IV
     Dosage: 400 MG, BID
     Route: 048
     Dates: start: 20090812, end: 20090829
  13. EBRANTIL [Concomitant]
     Dosage: 15 MG, BID
     Route: 048
     Dates: start: 20090819
  14. ATARAX [Concomitant]
     Dosage: 25 ML (DAILY DOSE), , INTRAMUSCULAR
     Route: 030
     Dates: start: 20090828, end: 20090828
  15. KERATINAMIN [Concomitant]
     Dosage: UNK
     Route: 061
     Dates: start: 20090821
  16. LENDORMIN [Concomitant]
     Indication: INSOMNIA
     Dosage: 0.25 MG, PRN
     Route: 048
     Dates: start: 20090824
  17. OXYCONTIN [Concomitant]
     Dosage: 5 MG, BID
     Route: 048
     Dates: start: 20090828
  18. LAXOBERON [Concomitant]
     Dosage: DAILY DOSE 10 ML
     Route: 048
     Dates: start: 20090902
  19. PURSENNID [Concomitant]
     Dosage: 24 MG, HS
     Route: 048
     Dates: start: 20090819

REACTIONS (2)
  - ACUTE RESPIRATORY FAILURE [None]
  - RENAL CELL CARCINOMA [None]
